FAERS Safety Report 8499940 (Version 6)
Quarter: 2012Q4

REPORT INFORMATION
  Report Type: 
  Country: US (occurrence: US)
  Receive Date: 20120409
  Receipt Date: 20120928
  Transmission Date: 20130627
  Serious: Yes (Hospitalization)
  Sender: FDA-Public Use
  Company Number: US-GLAXOSMITHKLINE-A0972026A

PATIENT
  Age: 63 Year
  Sex: Female

DRUGS (14)
  1. ADVAIR [Suspect]
     Indication: CHRONIC OBSTRUCTIVE PULMONARY DISEASE
     Dosage: 1PUFF Twice per day
     Route: 055
     Dates: start: 200504
  2. VENTOLIN [Suspect]
     Indication: CHRONIC OBSTRUCTIVE PULMONARY DISEASE
     Dosage: 1PUFF As required
     Route: 055
     Dates: start: 200804
  3. SPIRIVA [Concomitant]
  4. SERTRALINE [Concomitant]
  5. BENAZEPRIL [Concomitant]
  6. LIPITOR [Concomitant]
  7. AMLODIPINE [Concomitant]
  8. PLAVIX [Concomitant]
  9. ASPIRIN [Concomitant]
  10. VITAMIN D [Concomitant]
  11. METFORMIN [Concomitant]
  12. LORAZEPAM [Concomitant]
  13. METOPROLOL TARTRATE [Concomitant]
  14. OXYGEN [Concomitant]

REACTIONS (10)
  - Myocardial infarction [Recovering/Resolving]
  - Respiratory arrest [Recovering/Resolving]
  - Loss of consciousness [Recovering/Resolving]
  - Terminal state [Recovering/Resolving]
  - Pneumonia [Unknown]
  - Chest injury [Recovering/Resolving]
  - Arterial occlusive disease [Unknown]
  - Dysphonia [Unknown]
  - Sensory disturbance [Unknown]
  - Road traffic accident [Recovering/Resolving]
